FAERS Safety Report 6310060-9 (Version None)
Quarter: 2009Q3

REPORT INFORMATION
  Report Type: 
  Country: None (occurrence: None)
  Receive Date: 20090814
  Receipt Date: 20090805
  Transmission Date: 20100115
  Serious: Yes (Other)
  Sender: FDA-Public Use
  Company Number: GB-ABBOTT-09P-167-0587948-00

PATIENT
  Sex: Female

DRUGS (1)
  1. HUMIRA [Suspect]
     Indication: CROHN'S DISEASE
     Route: 058
     Dates: start: 20090527, end: 20090727

REACTIONS (4)
  - BODY TEMPERATURE [None]
  - INFLUENZA [None]
  - MALAISE [None]
  - OROPHARYNGEAL PAIN [None]
